FAERS Safety Report 8842051 (Version 2)
Quarter: 2012Q4

REPORT INFORMATION
  Report Type: 
  Country: IE (occurrence: IE)
  Receive Date: 20121016
  Receipt Date: 20121111
  Transmission Date: 20130627
  Serious: No
  Sender: FDA-Public Use
  Company Number: PHHY2012IE089656

PATIENT
  Sex: Female

DRUGS (2)
  1. CATAFLAM [Suspect]
     Dosage: 50 mg, UNK
     Route: 048
  2. DIAZEPAM [Concomitant]
     Dosage: 1 DF, TID
     Route: 048

REACTIONS (1)
  - Exposure during pregnancy [Unknown]
